FAERS Safety Report 9198829 (Version 1)
Quarter: 2013Q1

REPORT INFORMATION
  Report Type: Report from Study
  Country: GB (occurrence: GB)
  Receive Date: 20130329
  Receipt Date: 20130329
  Transmission Date: 20140127
  Serious: Yes (Hospitalization)
  Sender: FDA-Public Use
  Company Number: GB-009507513-1303USA011476

PATIENT
  Age: 71 Year
  Sex: Female
  Weight: 67.6 kg

DRUGS (7)
  1. LISINOPRIL [Suspect]
     Indication: HYPERTENSION
     Dosage: 10 MG, QD
     Route: 048
     Dates: start: 20060908, end: 20130206
  2. SUNITINIB MALATE [Suspect]
     Indication: METASTATIC MALIGNANT MELANOMA
     Dosage: 50 MG, QD
     Route: 048
     Dates: start: 20130115, end: 20130205
  3. ATENOLOL [Suspect]
     Indication: HYPERTENSION
     Dosage: 50 MG, QD
     Route: 048
     Dates: start: 20011016
  4. SIMVASTATIN [Concomitant]
     Indication: HYPERCHOLESTEROLAEMIA
     Dosage: 20 MG, QD
     Route: 048
     Dates: start: 20011204
  5. LANZOPRAZOL [Concomitant]
     Indication: HYPERCHLORHYDRIA
     Dosage: 30 MG, QD
     Route: 048
     Dates: start: 20121130
  6. CARBOXYMETHYLCELLULOSE SODIUM [Concomitant]
     Dosage: UNK UNK, PRN
     Route: 047
     Dates: start: 20121029
  7. ACETAMINOPHEN (+) CODEINE PHOSPHATE [Concomitant]
     Indication: ANALGESIC THERAPY
     Dosage: UNK UNK, PRN
     Route: 048
     Dates: start: 20130201

REACTIONS (1)
  - Right ventricular failure [Not Recovered/Not Resolved]
